FAERS Safety Report 8517625-4 (Version None)
Quarter: 2012Q3

REPORT INFORMATION
  Report Type: 
  Country: None (occurrence: None)
  Receive Date: 20120718
  Receipt Date: 20120713
  Transmission Date: 20120928
  Serious: Yes (Other)
  Sender: FDA-Public Use
  Company Number: JP-PFIZER INC-2012168474

PATIENT
  Age: 60 Year
  Sex: Female

DRUGS (4)
  1. CELEBREX [Suspect]
     Dosage: UNK
     Route: 048
  2. RHEUMATREX [Suspect]
     Dosage: UNK
     Route: 048
  3. AZULFIDINE [Suspect]
     Dosage: UNK
  4. MUCOSTA [Suspect]
     Dosage: UNK

REACTIONS (1)
  - PERICARDITIS [None]
